FAERS Safety Report 9625462 (Version 8)
Quarter: 2013Q4

REPORT INFORMATION
  Report Type: Spontaneous
  Country: US (occurrence: US)
  Receive Date: 20131016
  Receipt Date: 20131118
  Transmission Date: 20140711
  Serious: Yes (Death, Hospitalization)
  Sender: FDA-Public Use
  Company Number: US-JNJFOC-20131005277

PATIENT
  Age: 76 Year
  Sex: Female
  Weight: 58.97 kg

DRUGS (1)
  1. XARELTO [Suspect]
     Indication: ATRIAL THROMBOSIS
     Route: 048

REACTIONS (1)
  - Haemorrhage intracranial [Fatal]
